FAERS Safety Report 19455933 (Version 1)
Quarter: 2021Q2

REPORT INFORMATION
  Report Type: Spontaneous
  Country: US (occurrence: US)
  Receive Date: 20210624
  Receipt Date: 20210624
  Transmission Date: 20210717
  Serious: No
  Sender: FDA-Public Use
  Company Number: None

PATIENT
  Age: 74 Year
  Sex: Male
  Weight: 90 kg

DRUGS (1)
  1. ENOXAPARIN [ENOXAPARIN 150MG/ML INJ, SYRINGE, 1ML [Suspect]
     Active Substance: ENOXAPARIN
     Indication: PULMONARY EMBOLISM
     Route: 058
     Dates: start: 20210120, end: 20210613

REACTIONS (3)
  - Haemorrhage intracranial [None]
  - Confusional state [None]
  - Haemorrhage [None]

NARRATIVE: CASE EVENT DATE: 20210616
